FAERS Safety Report 6286362-1 (Version None)
Quarter: 2009Q3

REPORT INFORMATION
  Report Type: 
  Country: None (occurrence: None)
  Receive Date: 20090724
  Receipt Date: 20090710
  Transmission Date: 20100115
  Serious: Yes (Hospitalization)
  Sender: FDA-Public Use
  Company Number: 8048929

PATIENT
  Age: 3 Year
  Sex: Female
  Weight: 13.2 kg

DRUGS (5)
  1. KEPPRA [Suspect]
     Indication: CONVULSION
     Dosage: 3 ML /D PO
     Route: 048
     Dates: start: 20070101, end: 20090401
  2. KEPPRA [Suspect]
     Indication: CONVULSION
     Dosage: 250 MG /D PO
     Route: 048
     Dates: start: 20090501
  3. KEPPRA [Suspect]
     Indication: CONVULSION
     Dosage: 500 MG /D PO
     Route: 048
     Dates: start: 20090501
  4. LEVETIRACETAM [Suspect]
     Indication: CONVULSION
     Dosage: 3 ML /D PO
     Route: 048
     Dates: start: 20090401, end: 20090501
  5. DEPAKOTE [Concomitant]

REACTIONS (3)
  - CONDITION AGGRAVATED [None]
  - CONVULSION [None]
  - PRODUCT SUBSTITUTION ISSUE [None]
